FAERS Safety Report 9417057 (Version 2)
Quarter: 2013Q4

REPORT INFORMATION
  Report Type: Spontaneous
  Country: AU (occurrence: AU)
  Receive Date: 20130724
  Receipt Date: 20131009
  Transmission Date: 20140711
  Serious: Yes (Death, Hospitalization, Other)
  Sender: FDA-Public Use
  Company Number: AU-MPIJNJ-2013-05452

PATIENT
  Sex: 0

DRUGS (1)
  1. VELCADE [Suspect]
     Indication: PLASMA CELL MYELOMA
     Dosage: UNK, 1/WEEK
     Route: 065
     Dates: start: 201111

REACTIONS (2)
  - Acute hepatic failure [Fatal]
  - Hepatitis B [Unknown]
